FAERS Safety Report 26148824 (Version 1)
Quarter: 2025Q4

REPORT INFORMATION
  Report Type: Spontaneous
  Country: GB (occurrence: GB)
  Receive Date: 20251212
  Receipt Date: 20251212
  Transmission Date: 20260118
  Serious: Yes (Other)
  Sender: MICRO LABS LIMITED
  Company Number: None

PATIENT
  Age: 50 Year
  Sex: Female
  Weight: 58 kg

DRUGS (1)
  1. AMOXICILLIN [Suspect]
     Active Substance: AMOXICILLIN
     Indication: Dental implantation
     Dosage: 500MG 3 TIMES A DAY
     Dates: start: 20251025, end: 20251029

REACTIONS (7)
  - Muscle spasms [Unknown]
  - Diarrhoea [Recovering/Resolving]
  - Influenza like illness [Unknown]
  - Feeling cold [Unknown]
  - Headache [Unknown]
  - Abdominal pain [Unknown]
  - Nausea [Unknown]

NARRATIVE: CASE EVENT DATE: 20251101
